FAERS Safety Report 5745595-0 (Version None)
Quarter: 2008Q2

REPORT INFORMATION
  Report Type: 
  Country: None (occurrence: None)
  Receive Date: 20080521
  Receipt Date: 20080513
  Transmission Date: 20081010
  Serious: Yes (Other)
  Sender: FDA-Public Use
  Company Number: GB-PFIZER INC-2008041861

PATIENT
  Age: 75 Year
  Sex: Male
  Weight: 51 kg

DRUGS (6)
  1. CHANTIX [Suspect]
     Indication: SMOKING CESSATION THERAPY
     Route: 048
     Dates: start: 20080403, end: 20080419
  2. FERROUS SULFATE TAB [Concomitant]
  3. FOLIC ACID [Concomitant]
  4. LEFLUNOMIDE [Concomitant]
  5. PREDNISOLONE [Concomitant]
  6. VIAGRA [Concomitant]

REACTIONS (6)
  - DYSPEPSIA [None]
  - DYSPHAGIA [None]
  - EATING DISORDER [None]
  - MALAISE [None]
  - NAUSEA [None]
  - RETCHING [None]
